FAERS Safety Report 5307284-6 (Version None)
Quarter: 2007Q2

REPORT INFORMATION
  Report Type: 
  Country: None (occurrence: None)
  Receive Date: 20070423
  Receipt Date: 20070423
  Transmission Date: 20071010
  Serious: Yes (Life-Threatening, Hospitalization)
  Sender: FDA-Public Use
  Company Number: None

PATIENT
  Sex: Male
  Weight: 144 kg

DRUGS (9)
  1. WARFARIN SODIUM [Suspect]
     Indication: CARDIAC FAILURE CONGESTIVE
     Dosage: 7.5 MG DAILY EXCEPT 11.25 MG ON W + SUN
     Dates: start: 20051018, end: 20061201
  2. WARFARIN SODIUM [Suspect]
     Indication: THROMBOSIS PROPHYLAXIS
     Dosage: 7.5 MG DAILY EXCEPT 11.25 MG ON W + SUN
     Dates: start: 20051018, end: 20061201
  3. SIMVASTATIN [Concomitant]
  4. METOLAZONE [Concomitant]
  5. LISINOPRIL [Concomitant]
  6. GABAPENTIN [Concomitant]
  7. GEMFIBROZIL [Concomitant]
  8. OMEPRAZOLE [Concomitant]
  9. PAROXETINE [Concomitant]

REACTIONS (5)
  - CARDIAC TAMPONADE [None]
  - INTERNATIONAL NORMALISED RATIO INCREASED [None]
  - PERICARDIAL HAEMORRHAGE [None]
  - POST PROCEDURAL COMPLICATION [None]
  - SHOCK [None]
